FAERS Safety Report 11347293 (Version 1)
Quarter: 2015Q3

REPORT INFORMATION
  Report Type: Spontaneous
  Country: US (occurrence: US)
  Receive Date: 20150803
  Receipt Date: 20150803
  Transmission Date: 20151125
  Serious: Yes (Death)
  Sender: FDA-Public Use
  Company Number: US-ELI_LILLY_AND_COMPANY-US201105005548

PATIENT
  Sex: Male

DRUGS (2)
  1. ZYPREXA [Suspect]
     Active Substance: OLANZAPINE
     Indication: BIPOLAR DISORDER
     Dosage: 5 MG, QD
  2. ZYPREXA [Suspect]
     Active Substance: OLANZAPINE
     Dosage: 10 MG, QD

REACTIONS (2)
  - Completed suicide [Fatal]
  - Malaise [Unknown]
